FAERS Safety Report 18355850 (Version 4)
Quarter: 2021Q1

REPORT INFORMATION
  Report Type: Spontaneous
  Country: US (occurrence: US)
  Receive Date: 20201007
  Receipt Date: 20210204
  Transmission Date: 20210419
  Serious: No
  Sender: FDA-Public Use
  Company Number: US-PFIZER INC-2020386354

PATIENT
  Age: 43 Year
  Sex: Female

DRUGS (2)
  1. BRAFTOVI [Suspect]
     Active Substance: ENCORAFENIB
     Dosage: 300 MG, DAILY [75 MG OF 4 CAPSULES DAILY]
     Dates: start: 202008
  2. CETUXIMAB. [Suspect]
     Active Substance: CETUXIMAB
     Dosage: 880 MG (DOSAGE: CETUXIMAB?880 MG)
     Dates: start: 202008

REACTIONS (3)
  - Onychoclasis [Unknown]
  - Rash [Unknown]
  - Neoplasm progression [Unknown]
